FAERS Safety Report 10143780 (Version 1)
Quarter: 2014Q2

REPORT INFORMATION
  Report Type: Spontaneous
  Country: US (occurrence: US)
  Receive Date: 20140430
  Receipt Date: 20140430
  Transmission Date: 20141212
  Serious: Yes (Death, Other)
  Sender: FDA-Public Use
  Company Number: US-BAYER-2014-060135

PATIENT
  Age: 42 Year
  Sex: Female

DRUGS (1)
  1. BAYER GENUINE ASPIRIN ORIGINAL STRENGTH [Suspect]
     Indication: MIGRAINE
     Route: 048

REACTIONS (3)
  - Death [Fatal]
  - Haemorrhage [None]
  - Intentional product misuse [None]
